FAERS Safety Report 9108560 (Version 3)
Quarter: 2013Q2

REPORT INFORMATION
  Report Type: Spontaneous
  Country: US (occurrence: US)
  Receive Date: 20130222
  Receipt Date: 20130412
  Transmission Date: 20140414
  Serious: Yes (Death)
  Sender: FDA-Public Use
  Company Number: US-009507513-1302USA008908

PATIENT
  Age: 11 Year
  Sex: Female
  Weight: 33.56 kg

DRUGS (7)
  1. SINGULAIR [Suspect]
     Indication: ASTHMA
     Dosage: 5 MG, UNK
     Route: 048
     Dates: start: 2008, end: 201210
  2. SINGULAIR [Suspect]
     Indication: RHINITIS ALLERGIC
     Dosage: UNK
     Dates: start: 2012
  3. MONTELUKAST SODIUM [Suspect]
     Dosage: UNK
     Dates: start: 2012, end: 2012
  4. MONTELUKAST SODIUM [Suspect]
     Dosage: UNK
  5. SYMBICORT [Concomitant]
     Indication: ASTHMA
     Dosage: UNK UNK, BID
     Route: 048
     Dates: start: 20121120, end: 20121220
  6. ADVAIR [Concomitant]
     Indication: ASTHMA
     Dosage: BID
     Route: 048
     Dates: start: 20121016, end: 20121110
  7. DULERA [Concomitant]
     Indication: ASTHMA
     Dosage: 2 PUFFS, BID
     Route: 048
     Dates: start: 20121220

REACTIONS (6)
  - Completed suicide [Fatal]
  - Mood altered [Recovering/Resolving]
  - Abnormal behaviour [Unknown]
  - Personality change [Unknown]
  - Poor quality sleep [Unknown]
  - Irritability [Unknown]
